FAERS Safety Report 14614229 (Version 1)
Quarter: 2018Q1

REPORT INFORMATION
  Report Type: Spontaneous
  Country: US (occurrence: US)
  Receive Date: 20180308
  Receipt Date: 20180308
  Transmission Date: 20180509
  Serious: Yes (Hospitalization)
  Sender: FDA-Public Use
  Company Number: None

PATIENT
  Age: 25 Year
  Sex: Male
  Weight: 89.81 kg

DRUGS (1)
  1. GADAVIST [Suspect]
     Active Substance: GADOBUTROL
     Indication: SEIZURE
     Route: 042
     Dates: start: 20180308

REACTIONS (7)
  - Skin tightness [None]
  - Pain [None]
  - Rash erythematous [None]
  - Paraesthesia [None]
  - Swelling face [None]
  - Erythema [None]
  - Contrast media reaction [None]

NARRATIVE: CASE EVENT DATE: 20180308
